FAERS Safety Report 25006166 (Version 1)
Quarter: 2025Q1

REPORT INFORMATION
  Report Type: Spontaneous
  Country: JP (occurrence: JP)
  Receive Date: 20250224
  Receipt Date: 20250224
  Transmission Date: 20250409
  Serious: Yes (Hospitalization)
  Sender: RIGEL PHARMACEUTICALS
  Company Number: JP-KISSEI-TL20240371_P_1

PATIENT
  Age: 61 Year
  Sex: Female

DRUGS (5)
  1. TAVALISSE [Suspect]
     Active Substance: FOSTAMATINIB
     Indication: Immune thrombocytopenia
     Dosage: 150 MG, QD
     Route: 048
     Dates: start: 2024, end: 2024
  2. TAVALISSE [Suspect]
     Active Substance: FOSTAMATINIB
     Dosage: 100 MG, QD
     Route: 048
     Dates: start: 2024, end: 2024
  3. TAVALISSE [Suspect]
     Active Substance: FOSTAMATINIB
     Dosage: 150 MG, QD
     Route: 048
  4. TAVALISSE [Suspect]
     Active Substance: FOSTAMATINIB
     Dosage: 200 MG, QD
     Route: 048
     Dates: start: 20240417
  5. ADRENAL GLAND [Concomitant]
     Indication: Product used for unknown indication
     Dosage: 3 MG/DAY
     Route: 065

REACTIONS (2)
  - Anaemia [Recovering/Resolving]
  - Hepatic function abnormal [Recovered/Resolved]

NARRATIVE: CASE EVENT DATE: 20240101
